FAERS Safety Report 5319398-5 (Version None)
Quarter: 2007Q2

REPORT INFORMATION
  Report Type: 
  Country: None (occurrence: None)
  Receive Date: 20070508
  Receipt Date: 20070426
  Transmission Date: 20071010
  Serious: Yes (Other)
  Sender: FDA-Public Use
  Company Number: JP-PFIZER INC-2007018786

PATIENT
  Age: 60 Year
  Sex: Male
  Weight: 72.3 kg

DRUGS (3)
  1. UNASYN [Suspect]
     Indication: PNEUMONIA BACTERIAL
     Route: 042
     Dates: start: 20070228, end: 20070302
  2. MERCAZOLE [Concomitant]
  3. TICLOPIDINE HCL [Concomitant]
     Route: 048

REACTIONS (4)
  - ARTHRALGIA [None]
  - OEDEMA PERIPHERAL [None]
  - PYREXIA [None]
  - RASH [None]
